FAERS Safety Report 19369801 (Version 10)
Quarter: 2021Q3

REPORT INFORMATION
  Report Type: Report from Study
  Country: GR (occurrence: GR)
  Receive Date: 20210603
  Receipt Date: 20210809
  Transmission Date: 20211014
  Serious: Yes (Hospitalization)
  Sender: FDA-Public Use
  Company Number: GR-EISAI MEDICAL RESEARCH-EC-2021-093177

PATIENT
  Age: 54 Year
  Sex: Male
  Weight: 74 kg

DRUGS (13)
  1. LENVATINIB [Suspect]
     Active Substance: LENVATINIB
     Indication: NON-SMALL CELL LUNG CANCER METASTATIC
     Route: 048
     Dates: start: 20210122, end: 20210527
  2. LENVATINIB [Suspect]
     Active Substance: LENVATINIB
     Dosage: REDUCED DOSAGE
     Route: 048
     Dates: start: 20210625
  3. CALCIUM CHOLECALCIFEROL BERES [Concomitant]
     Active Substance: CALCIUM CARBONATE\CHOLECALCIFEROL
     Dates: start: 20201010
  4. PEMBROLIZUMAB. [Suspect]
     Active Substance: PEMBROLIZUMAB
     Indication: NON-SMALL CELL LUNG CANCER METASTATIC
     Route: 041
     Dates: start: 20210122, end: 20210414
  5. PEMBROLIZUMAB. [Suspect]
     Active Substance: PEMBROLIZUMAB
     Route: 041
     Dates: start: 20210506, end: 20210506
  6. TAGAMET [Concomitant]
     Active Substance: CIMETIDINE
     Dates: start: 20210506, end: 20210506
  7. PEMBROLIZUMAB. [Suspect]
     Active Substance: PEMBROLIZUMAB
     Route: 041
     Dates: start: 20210625, end: 20210625
  8. FENTANYL. [Concomitant]
     Active Substance: FENTANYL
     Dates: start: 20201010
  9. PEMBROLIZUMAB. [Suspect]
     Active Substance: PEMBROLIZUMAB
     Route: 041
     Dates: start: 20210714
  10. ACETAMINOPHEN. [Concomitant]
     Active Substance: ACETAMINOPHEN
     Dates: start: 20201010
  11. DENOSUMAB [Concomitant]
     Active Substance: DENOSUMAB
     Dates: start: 20210120
  12. APOTEL [Concomitant]
     Active Substance: ACETAMINOPHEN
     Dates: start: 20210506, end: 20210506
  13. T4 [Concomitant]
     Active Substance: LEVOTHYROXINE
     Dates: start: 20210324, end: 20210517

REACTIONS (2)
  - Hypophysitis [Recovered/Resolved with Sequelae]
  - Cardiac failure [Recovered/Resolved]

NARRATIVE: CASE EVENT DATE: 20210516
